FAERS Safety Report 5723017-3 (Version None)
Quarter: 2008Q2

REPORT INFORMATION
  Report Type: 
  Country: None (occurrence: None)
  Receive Date: 20080425
  Receipt Date: 20080411
  Transmission Date: 20081010
  Serious: Yes (Death, Life-Threatening, Hospitalization)
  Sender: FDA-Public Use
  Company Number: 2007S1009819

PATIENT
  Age: 67 Year
  Sex: Male

DRUGS (31)
  1. DOXYCYCLINE [Suspect]
     Indication: DRUG USE FOR UNKNOWN INDICATION
     Dosage: ORAL
     Route: 048
  2. ACOMPLIA [Suspect]
     Indication: WEIGHT DECREASED
     Dosage: 20 MG, DAILY; ORAL
     Route: 048
  3. ERYTHROMYCIN [Suspect]
     Indication: LOWER RESPIRATORY TRACT INFECTION
  4. ALLOPURINOL [Concomitant]
  5. AMOXICILLIN [Concomitant]
  6. ASPIRIN [Concomitant]
  7. ATORVASTATIN [Concomitant]
  8. BUDESONIDE [Concomitant]
  9. CHLORHEXIDINE GLUCONATE [Concomitant]
  10. CIALIS [Concomitant]
  11. HYDROCORTISONE W/MICONAZOLE [Concomitant]
  12. PARAFFIN [Concomitant]
  13. DOUBLEBASE L [Concomitant]
  14. DOXYCYCLINE [Concomitant]
  15. ERYTHROMYCIN [Concomitant]
  16. FORMOTEROL [Concomitant]
  17. FORMOTEROL FUMARATE [Concomitant]
  18. FUROSEMIDE [Concomitant]
  19. GLIPIZIDE [Concomitant]
  20. HYDROCHLOROTHIAZIDE [Concomitant]
  21. LANSOPRAZOLE [Concomitant]
  22. LISINOPRIL [Concomitant]
  23. METFORMIN HCL [Concomitant]
  24. MICONAZOLE [Concomitant]
  25. PREDNISOLONE [Concomitant]
  26. RAMIPRIL [Concomitant]
  27. ROSIGLITAZONE [Concomitant]
  28. SALAMOL [Concomitant]
  29. TIOTROPIUM BROMIDE [Concomitant]
  30. DAKTACORT [Concomitant]
  31. DIPROBASE [Concomitant]

REACTIONS (10)
  - ANAEMIA [None]
  - COUGH [None]
  - DIARRHOEA [None]
  - DRUG INTERACTION [None]
  - DYSPNOEA [None]
  - EOSINOPHILIA [None]
  - PNEUMONIA FUNGAL [None]
  - RENAL FAILURE ACUTE [None]
  - STEVENS-JOHNSON SYNDROME [None]
  - TOXIC SHOCK SYNDROME [None]
